FAERS Safety Report 8588687-3 (Version None)
Quarter: 2012Q3

REPORT INFORMATION
  Report Type: 
  Country: None (occurrence: None)
  Receive Date: 20120813
  Receipt Date: 20120806
  Transmission Date: 20120928
  Serious: Yes (Hospitalization, Other)
  Sender: FDA-Public Use
  Company Number: PHBS2006BR07718

PATIENT
  Sex: Female
  Weight: 90 kg

DRUGS (7)
  1. PROPYL-THIOURACIL [Concomitant]
     Dosage: 2 DF, UNK
     Route: 048
  2. LIPITOR [Concomitant]
     Indication: HYPERCHOLESTEROLAEMIA
     Dosage: 1 DF, QD
     Route: 048
  3. FORMOTEROL FUMARATE [Suspect]
     Dosage: 1 DF, BID
  4. ZESTRIL [Concomitant]
     Dosage: 2 DF, UNK
  5. FORMOTEROL FUMARATE [Suspect]
     Indication: ASTHMA
     Dosage: 2 DF, UNK
     Dates: start: 20050101
  6. DILTIAZEM [Concomitant]
  7. DILTIAZEM [Concomitant]
     Indication: HYPERTENSION
     Dosage: 60 MG, UNK

REACTIONS (14)
  - DYSPNOEA [None]
  - ANXIETY [None]
  - HYPERTENSION [None]
  - ODYNOPHAGIA [None]
  - WRONG TECHNIQUE IN DRUG USAGE PROCESS [None]
  - OROPHARYNGEAL PAIN [None]
  - EAR PAIN [None]
  - LUNG NEOPLASM MALIGNANT [None]
  - LARYNGEAL ULCERATION [None]
  - GALLBLADDER POLYP [None]
  - SINUS HEADACHE [None]
  - HAEMORRHAGE [None]
  - HEADACHE [None]
  - DRUG INEFFECTIVE [None]
